FAERS Safety Report 9314781 (Version 3)
Quarter: 2013Q2

REPORT INFORMATION
  Report Type: Spontaneous
  Country: US (occurrence: US)
  Receive Date: 20130529
  Receipt Date: 20130613
  Transmission Date: 20140414
  Serious: No
  Sender: FDA-Public Use
  Company Number: US-ELI_LILLY_AND_COMPANY-US201305005246

PATIENT
  Sex: Male
  Weight: 108.84 kg

DRUGS (14)
  1. ZYPREXA RELPREVV [Suspect]
     Indication: BIPOLAR DISORDER
     Dosage: 300 MG, OTHER
     Route: 030
     Dates: start: 20110816, end: 20120228
  2. ZYPREXA [Suspect]
     Dosage: 15 MG, UNK
     Route: 048
  3. ZOCOR [Concomitant]
     Dosage: 40 MG, UNKNOWN
     Route: 048
  4. LUNESTA [Concomitant]
     Dosage: 3 MG, UNKNOWN
     Route: 048
  5. PRILOSEC [Concomitant]
     Dosage: UNK, UNKNOWN
     Route: 065
  6. ADVAIR [Concomitant]
     Dosage: UNK, UNKNOWN
     Route: 065
  7. LITHIUM [Concomitant]
     Dosage: UNK, UNKNOWN
     Route: 065
  8. CLONAZEPAM [Concomitant]
     Dosage: UNK, UNKNOWN
     Route: 065
  9. SYNTHROID [Concomitant]
     Dosage: UNK, UNKNOWN
     Route: 065
  10. ZOLOFT [Concomitant]
     Dosage: UNK, UNKNOWN
     Route: 065
  11. SPIRIVA [Concomitant]
     Dosage: UNK, UNKNOWN
     Route: 065
  12. FLONASE [Concomitant]
     Dosage: UNK, UNKNOWN
     Route: 065
  13. RISPERDAL [Concomitant]
     Dosage: UNK, UNKNOWN
     Route: 065
  14. TRAZODONE [Concomitant]
     Dosage: UNK, UNKNOWN
     Route: 065

REACTIONS (2)
  - Prescribed overdose [Unknown]
  - Off label use [Unknown]
